FAERS Safety Report 13766709 (Version 1)
Quarter: 2017Q3

REPORT INFORMATION
  Report Type: Spontaneous
  Country: TW (occurrence: TW)
  Receive Date: 20170719
  Receipt Date: 20170719
  Transmission Date: 20171127
  Serious: Yes (Other)
  Sender: FDA-Public Use
  Company Number: TW-ALLERGAN-1730224US

PATIENT
  Sex: Male

DRUGS (5)
  1. TRIPTORELIN PAMOATE UNK [Suspect]
     Active Substance: TRIPTORELIN PAMOATE
     Indication: PROSTATE CANCER
     Dosage: UNK
     Route: 065
  2. MEGESTROL [Suspect]
     Active Substance: MEGESTROL
     Indication: PROSTATE CANCER
     Dosage: UNK
     Route: 065
  3. GRISETIN (FLUTAMIDE) [Suspect]
     Active Substance: FLUTAMIDE
     Indication: PROSTATE CANCER
     Dosage: UNK
     Route: 065
  4. CYPROTERONE [Suspect]
     Active Substance: CYPROTERONE
     Indication: PROSTATE CANCER
     Dosage: UNK
     Route: 065
  5. BICALUTAMIDE. [Suspect]
     Active Substance: BICALUTAMIDE
     Indication: PROSTATE CANCER
     Dosage: UNK
     Route: 065

REACTIONS (1)
  - Dementia Alzheimer^s type [Unknown]
